FAERS Safety Report 12109150 (Version 1)
Quarter: 2016Q1

REPORT INFORMATION
  Report Type: Spontaneous
  Country: JP (occurrence: JP)
  Receive Date: 20160224
  Receipt Date: 20160224
  Transmission Date: 20160526
  Serious: Yes (Other)
  Sender: FDA-Public Use
  Company Number: JP-BAYER-2016-035203

PATIENT
  Age: 53 Year
  Sex: Female

DRUGS (3)
  1. INTERFERON BETA-1A [INTERFERON BETA-1A] [Interacting]
     Active Substance: INTERFERON BETA-1A
     Indication: RELAPSING-REMITTING MULTIPLE SCLEROSIS
     Dosage: UNK
     Dates: end: 2016
  2. BETAFERON [Suspect]
     Active Substance: INTERFERON BETA-1B
     Indication: RELAPSING-REMITTING MULTIPLE SCLEROSIS
     Dosage: UNK
     Dates: start: 2005
  3. ESTRADIOL + NORETHISTERONE ACETATE (ORAL) [Interacting]
     Active Substance: ETHINYL ESTRADIOL\NORETHINDRONE ACETATE
     Indication: MENOPAUSAL SYMPTOMS
     Dosage: UNK
     Route: 048
     Dates: start: 2015, end: 2016

REACTIONS (6)
  - Pain in extremity [Recovered/Resolved]
  - Antinuclear antibody positive [None]
  - Cyanosis [Recovered/Resolved]
  - Oedema [Recovered/Resolved]
  - Drug interaction [None]
  - Injection site pain [None]
